FAERS Safety Report 4878646-6 (Version None)
Quarter: 2005Q4

REPORT INFORMATION
  Report Type: 
  Country: None (occurrence: None)
  Receive Date: 20051209
  Receipt Date: 20050427
  Transmission Date: 20060501
  Serious: Yes (Death)
  Sender: FDA-Public Use
  Company Number: USA-2005-0019476

PATIENT
  Age: 42 Year
  Sex: Male

DRUGS (2)
  1. OXYCONTIN [Suspect]
  2. COCAINE (COCAINE) [Suspect]

REACTIONS (2)
  - COMA [None]
  - MULTIPLE DRUG OVERDOSE [None]
